FAERS Safety Report 17899743 (Version 1)
Quarter: 2020Q2

REPORT INFORMATION
  Report Type: Spontaneous
  Country: US (occurrence: US)
  Receive Date: 20200615
  Receipt Date: 20200615
  Transmission Date: 20200714
  Serious: Yes (Disabling)
  Sender: FDA-Public Use
  Company Number: None

PATIENT
  Age: 43 Year
  Sex: Female
  Weight: 83.34 kg

DRUGS (7)
  1. NP THYROID [Suspect]
     Active Substance: LEVOTHYROXINE\LIOTHYRONINE
     Indication: HYPOTHYROIDISM
     Dosage: ?          QUANTITY:1 TABLET(S);?
     Route: 048
     Dates: start: 20200526, end: 20200612
  2. REXULTI [Concomitant]
     Active Substance: BREXPIPRAZOLE
  3. MICROGESTIN [Concomitant]
     Active Substance: ETHINYL ESTRADIOL\NORETHINDRONE ACETATE
  4. AZELASTINE. [Concomitant]
     Active Substance: AZELASTINE HYDROCHLORIDE
  5. BIRTH CONTROL [Concomitant]
     Active Substance: UNSPECIFIED INGREDIENT
  6. WELLBUTRIN [Concomitant]
     Active Substance: BUPROPION HYDROCHLORIDE
  7. OMEPRAZOLE. [Concomitant]
     Active Substance: OMEPRAZOLE

REACTIONS (9)
  - Fatigue [None]
  - Sinusitis [None]
  - Accidental overdose [None]
  - Hypersensitivity [None]
  - Pain in extremity [None]
  - Middle ear effusion [None]
  - Dizziness [None]
  - Blood pressure increased [None]
  - Recalled product administered [None]

NARRATIVE: CASE EVENT DATE: 20200527
